FAERS Safety Report 12927406 (Version 1)
Quarter: 2016Q4

REPORT INFORMATION
  Report Type: Spontaneous
  Country: US (occurrence: US)
  Receive Date: 20161109
  Receipt Date: 20161109
  Transmission Date: 20170207
  Serious: Yes (Other)
  Sender: FDA-Public Use
  Company Number: None

PATIENT
  Age: 57 Year
  Sex: Female
  Weight: 50.44 kg

DRUGS (14)
  1. CARBOPLATIN SAGENT [Suspect]
     Active Substance: CARBOPLATIN
     Indication: BREAST CANCER
     Dosage: 340.8 MG 309 ML/HR INTRAVENOUS
     Route: 042
     Dates: start: 20160728
  2. DECADRON MOUTHWASH [Concomitant]
  3. CALCIUM [Concomitant]
     Active Substance: CALCIUM
  4. XGEVA [Concomitant]
     Active Substance: DENOSUMAB
  5. NEULASTA [Concomitant]
     Active Substance: PEGFILGRASTIM
  6. MULTIVITAMIN [Concomitant]
     Active Substance: VITAMINS
  7. PALONOSETRON [Concomitant]
     Active Substance: PALONOSETRON
  8. HYDROCORTISONE. [Concomitant]
     Active Substance: HYDROCORTISONE
  9. EVEROLIMUS NOVARTIS [Suspect]
     Active Substance: EVEROLIMUS
     Indication: BREAST CANCER
     Dosage: 5 MG 1 TAB QD ORAL
     Route: 048
     Dates: start: 20160728
  10. DEXAMETHASONE. [Concomitant]
     Active Substance: DEXAMETHASONE
  11. PURE BAKING SODA [Concomitant]
     Active Substance: SODIUM BICARBONATE
  12. CLINDAMYCIN. [Concomitant]
     Active Substance: CLINDAMYCIN
  13. NEOSPORIN [Concomitant]
     Active Substance: BACITRACIN ZINC\NEOMYCIN SULFATE\POLYMYXIN B SULFATE
  14. BENADRYL [Concomitant]
     Active Substance: DIPHENHYDRAMINE HYDROCHLORIDE

REACTIONS (5)
  - Epistaxis [None]
  - Thrombocytopenia [None]
  - Fatigue [None]
  - Genital rash [None]
  - Rash erythematous [None]

NARRATIVE: CASE EVENT DATE: 20161021
